FAERS Safety Report 18945119 (Version 1)
Quarter: 2021Q1

REPORT INFORMATION
  Report Type: Spontaneous
  Country: US (occurrence: US)
  Receive Date: 20210226
  Receipt Date: 20210226
  Transmission Date: 20210420
  Serious: No
  Sender: FDA-Public Use
  Company Number: US-GW PHARMA-202102USGW00618

PATIENT

DRUGS (1)
  1. EPIDIOLEX [Suspect]
     Active Substance: CANNABIDIOL
     Indication: PRODUCT USED FOR UNKNOWN INDICATION
     Dosage: 700 MILLIGRAM, BID
     Route: 048

REACTIONS (3)
  - Autism spectrum disorder [Unknown]
  - Seizure [Unknown]
  - Autonomic nervous system imbalance [Unknown]
